FAERS Safety Report 16834212 (Version 1)
Quarter: 2019Q3

REPORT INFORMATION
  Report Type: Spontaneous
  Country: GB (occurrence: GB)
  Receive Date: 20190920
  Receipt Date: 20190920
  Transmission Date: 20191005
  Serious: Yes (Other)
  Sender: FDA-Public Use
  Company Number: GB-PFIZER INC-2019400231

PATIENT
  Age: 59 Year
  Sex: Female

DRUGS (8)
  1. ATORVASTATIN [Concomitant]
     Active Substance: ATORVASTATIN
     Dosage: 1 DF, 1X/DAY
     Dates: start: 20190215
  2. PREGABALIN. [Suspect]
     Active Substance: PREGABALIN
     Dosage: 150 MG, 1X/DAY
     Dates: start: 20190725, end: 20190807
  3. LAXIDO [Concomitant]
     Active Substance: POLYETHYLENE GLYCOL 3350\POTASSIUM CHLORIDE\SODIUM BICARBONATE\SODIUM CHLORIDE
     Dosage: 1 DF, 1X/DAY
     Dates: start: 20190215
  4. FELODIPINE. [Concomitant]
     Active Substance: FELODIPINE
     Dosage: 1 DF, 1X/DAY
     Dates: start: 20190215
  5. RAMIPRIL. [Concomitant]
     Active Substance: RAMIPRIL
     Dosage: 1 DF, 1X/DAY
     Dates: start: 20190215
  6. FLUOXETINE [Concomitant]
     Active Substance: FLUOXETINE HYDROCHLORIDE
     Dosage: 2 DF, 1X/DAY
     Dates: start: 20190403, end: 20190725
  7. DOXAZOSIN [Concomitant]
     Active Substance: DOXAZOSIN MESYLATE
     Dosage: 1 DF, 1X/DAY
     Dates: start: 20190215, end: 20190725
  8. BACLOFEN. [Concomitant]
     Active Substance: BACLOFEN
     Dosage: 6 DF, 1X/DAY
     Dates: start: 20190215

REACTIONS (3)
  - Dizziness [Recovered/Resolved]
  - Speech disorder [Recovered/Resolved]
  - Rash macular [Recovered/Resolved]

NARRATIVE: CASE EVENT DATE: 201907
